FAERS Safety Report 15369988 (Version 1)
Quarter: 2018Q3

REPORT INFORMATION
  Report Type: Spontaneous
  Country: US (occurrence: US)
  Receive Date: 20180911
  Receipt Date: 20180911
  Transmission Date: 20181010
  Serious: Yes (Other)
  Sender: FDA-Public Use
  Company Number: US-BAYER-2018-169578

PATIENT
  Age: 28 Year

DRUGS (1)
  1. MIRENA [Suspect]
     Active Substance: LEVONORGESTREL
     Dosage: 20 MCG/24HR, CONT
     Route: 015
     Dates: start: 20160128, end: 20180124

REACTIONS (12)
  - Dizziness [None]
  - Papilloedema [None]
  - Loss of consciousness [None]
  - Tinnitus [None]
  - Vision blurred [None]
  - Headache [None]
  - Neck pain [None]
  - Back pain [None]
  - Musculoskeletal pain [None]
  - Nausea [None]
  - Migraine with aura [None]
  - Intracranial pressure increased [None]
